FAERS Safety Report 4317804-6 (Version None)
Quarter: 2004Q1

REPORT INFORMATION
  Report Type: 
  Country: None (occurrence: None)
  Receive Date: 20040316
  Receipt Date: 20040305
  Transmission Date: 20041129
  Serious: Yes (Hospitalization)
  Sender: FDA-Public Use
  Company Number: PHNR2004AU00743

PATIENT
  Age: 45 Year
  Sex: Male

DRUGS (1)
  1. SANDOSTATIN [Suspect]
     Route: 042
     Dates: start: 20020928, end: 20020928

REACTIONS (3)
  - ACUTE RESPIRATORY DISTRESS SYNDROME [None]
  - BRONCHOSPASM [None]
  - HYPOXIA [None]
